FAERS Safety Report 21441896 (Version 1)
Quarter: 2022Q4

REPORT INFORMATION
  Report Type: Spontaneous
  Country: DE (occurrence: DE)
  Receive Date: 20221011
  Receipt Date: 20221011
  Transmission Date: 20230113
  Serious: Yes (Other)
  Sender: FDA-Public Use
  Company Number: DE-BAXTER-2022BAX021031

PATIENT
  Age: 54 Year
  Sex: Male

DRUGS (16)
  1. DEXAMETHASONE [Suspect]
     Active Substance: DEXAMETHASONE
     Indication: Diffuse large B-cell lymphoma
     Dosage: CYCLIC (SECOND LINE WITH RITUXIMAB THREE TIMES)
     Route: 065
     Dates: start: 20210801, end: 20211201
  2. POLIVY [Suspect]
     Active Substance: POLATUZUMAB VEDOTIN-PIIQ
     Indication: Diffuse large B-cell lymphoma
     Dosage: CYCLIC (IN THIRD LINE, WITH BENDAMUSTINE AND RITUXIMAB)
     Route: 065
     Dates: start: 20220201, end: 20220501
  3. CYCLOPHOSPHAMIDE [Suspect]
     Active Substance: CYCLOPHOSPHAMIDE
     Indication: Diffuse large B-cell lymphoma
     Dosage: UNK UNK, UNKNOWN FREQ.
     Route: 065
     Dates: start: 20181115, end: 20190401
  4. GEMCITABINE [Suspect]
     Active Substance: GEMCITABINE
     Indication: Diffuse large B-cell lymphoma
     Dosage: CYCLIC (SECOND LINE WITH RITUXIMAB THREE TIMES)
     Route: 065
     Dates: start: 20210801, end: 20211201
  5. CISPLATIN [Suspect]
     Active Substance: CISPLATIN
     Indication: Diffuse large B-cell lymphoma
     Dosage: CYCLIC (SECOND LINE WITH RITUXIMAB THREE TIMES)
     Route: 065
     Dates: start: 20210801, end: 20211201
  6. MELPHALAN [Suspect]
     Active Substance: MELPHALAN
     Indication: Diffuse large B-cell lymphoma
     Dosage: CYCLIC (SECOND LINE)
     Route: 065
  7. DOXORUBICIN [Suspect]
     Active Substance: DOXORUBICIN
     Indication: Diffuse large B-cell lymphoma
     Dosage: UNKNOWN FREQ.
     Route: 065
     Dates: start: 20181115, end: 20190401
  8. RITUXIMAB [Suspect]
     Active Substance: RITUXIMAB
     Indication: Diffuse large B-cell lymphoma
     Dosage: CYCLIC (IN THIRD LINE, WITH POLIVY AND BENDAMUSTINE)
     Route: 065
     Dates: start: 20220201, end: 20220501
  9. RITUXIMAB [Suspect]
     Active Substance: RITUXIMAB
     Dosage: CYCLIC (SECOND LINE WITH GDP THREE TIMES FOLLOWED BY BEAM)
     Route: 065
     Dates: start: 20210801, end: 20211201
  10. RITUXIMAB [Suspect]
     Active Substance: RITUXIMAB
     Dosage: CYCLIC (FIRST LINE WITH CHOP)
     Route: 065
     Dates: start: 20181115, end: 20190401
  11. CARMUSTINE [Suspect]
     Active Substance: CARMUSTINE
     Indication: Diffuse large B-cell lymphoma
     Dosage: CYCLIC (SECOND LINE)
     Route: 065
  12. ETOPOSIDE [Suspect]
     Active Substance: ETOPOSIDE
     Indication: Diffuse large B-cell lymphoma
     Dosage: CYCLIC (SECOND LINE)
     Route: 065
  13. BENDAMUSTINE HYDROCHLORIDE [Suspect]
     Active Substance: BENDAMUSTINE HYDROCHLORIDE
     Indication: Diffuse large B-cell lymphoma
     Dosage: POWDER (EXCEPT DUSTING POWDER), UNK UNK, CYCLIC (IN THIRD LINE, WITH POLIVY AND RITUXIMAB)
     Route: 042
     Dates: start: 20220201, end: 20220501
  14. CYTARABINE [Suspect]
     Active Substance: CYTARABINE
     Indication: Diffuse large B-cell lymphoma
     Dosage: UNK UNK, CYCLIC (SECOND LINE)
     Route: 065
  15. VINCRISTINE SULFATE [Suspect]
     Active Substance: VINCRISTINE SULFATE
     Indication: Diffuse large B-cell lymphoma
     Dosage: UNK UNK, UNKNOWN FREQ.
     Route: 065
     Dates: start: 20181115, end: 20190401
  16. PREDNISONE [Suspect]
     Active Substance: PREDNISONE
     Indication: Diffuse large B-cell lymphoma
     Dosage: UNK UNK, UNKNOWN FREQ.
     Route: 065
     Dates: start: 20181115, end: 20190401

REACTIONS (3)
  - Disease progression [Not Recovered/Not Resolved]
  - Blood bilirubin increased [Unknown]
  - Off label use [Unknown]

NARRATIVE: CASE EVENT DATE: 20220101
